FAERS Safety Report 24576378 (Version 3)
Quarter: 2025Q2

REPORT INFORMATION
  Report Type: Spontaneous
  Country: US (occurrence: US)
  Receive Date: 20241104
  Receipt Date: 20250530
  Transmission Date: 20250717
  Serious: No
  Sender: PFIZER
  Company Number: US-PFIZER INC-PV202400140742

PATIENT
  Age: 82 Year
  Sex: Female

DRUGS (2)
  1. TUKYSA [Suspect]
     Active Substance: TUCATINIB
     Dosage: 150MG TWO TABLETS TWICE A DAY
  2. TUKYSA [Suspect]
     Active Substance: TUCATINIB
     Dosage: 150 MG, 2X/DAY (ONE 150 MG TABLET)
     Dates: start: 202407

REACTIONS (4)
  - Diarrhoea [Unknown]
  - Joint swelling [Unknown]
  - Peripheral swelling [Unknown]
  - Malaise [Unknown]
